FAERS Safety Report 7707638-4 (Version None)
Quarter: 2011Q3

REPORT INFORMATION
  Report Type: 
  Country: None (occurrence: None)
  Receive Date: 20110824
  Receipt Date: 20110815
  Transmission Date: 20111222
  Serious: Yes (Other)
  Sender: FDA-Public Use
  Company Number: US-ELI_LILLY_AND_COMPANY-US201108005156

PATIENT
  Sex: Male

DRUGS (1)
  1. HUMALOG [Suspect]
     Indication: TYPE 1 DIABETES MELLITUS

REACTIONS (3)
  - ROAD TRAFFIC ACCIDENT [None]
  - HYPOGLYCAEMIA [None]
  - DRUG SPECIFIC ANTIBODY PRESENT [None]
